FAERS Safety Report 6127605-4 (Version None)
Quarter: 2009Q1

REPORT INFORMATION
  Report Type: 
  Country: None (occurrence: None)
  Receive Date: 20090319
  Receipt Date: 20090306
  Transmission Date: 20090719
  Serious: Yes (Hospitalization, Other)
  Sender: FDA-Public Use
  Company Number: CLOF-1000431

PATIENT
  Age: 12 Year
  Sex: Male

DRUGS (8)
  1. EVOLTRA (CLOFARABINE) [Suspect]
     Indication: ACUTE LEUKAEMIA
     Dosage: 40 MG/M2, QDX5, INTRAVENOUS
     Route: 042
     Dates: start: 20090102, end: 20090106
  2. ETOPOSIDE [Concomitant]
  3. CYCLOPHOSPHAMIDE [Concomitant]
  4. BACTRIM [Concomitant]
  5. FOLACIN (CALCIUM PHOSPHATE, FOLIC ACID) [Concomitant]
  6. ONDASETRON (ONDANSETRON) [Concomitant]
  7. VALTREX [Concomitant]
  8. MORPHINE [Concomitant]

REACTIONS (9)
  - ABASIA [None]
  - BALANCE DISORDER [None]
  - DIZZINESS [None]
  - HEADACHE [None]
  - NEUROTOXICITY [None]
  - NEUTROPENIA [None]
  - NYSTAGMUS [None]
  - VIRAL INFECTION [None]
  - VOMITING [None]
